FAERS Safety Report 24088705 (Version 5)
Quarter: 2025Q1

REPORT INFORMATION
  Report Type: Spontaneous
  Country: US (occurrence: US)
  Receive Date: 20240715
  Receipt Date: 20250114
  Transmission Date: 20250409
  Serious: No
  Sender: SANOFI AVENTIS
  Company Number: US-SA-SAC20240710000204

PATIENT
  Age: 4 Year
  Sex: Male

DRUGS (2)
  1. DUPIXENT [Suspect]
     Active Substance: DUPILUMAB
     Indication: Dermatitis atopic
     Dosage: 300 MG, Q4W
     Route: 058
     Dates: start: 20240528
  2. DUPIXENT [Suspect]
     Active Substance: DUPILUMAB
     Indication: Eczema

REACTIONS (8)
  - Initial insomnia [Unknown]
  - Eczema [Not Recovered/Not Resolved]
  - Skin exfoliation [Unknown]
  - Skin discolouration [Recovering/Resolving]
  - Pruritus [Not Recovered/Not Resolved]
  - Dry skin [Unknown]
  - Therapeutic response decreased [Not Recovered/Not Resolved]
  - Injection site swelling [Unknown]

NARRATIVE: CASE EVENT DATE: 20240101
